FAERS Safety Report 21441127 (Version 3)
Quarter: 2022Q4

REPORT INFORMATION
  Report Type: Spontaneous
  Country: IT (occurrence: IT)
  Receive Date: 20221011
  Receipt Date: 20221223
  Transmission Date: 20230112
  Serious: Yes (Death, Hospitalization, Other)
  Sender: FDA-Public Use
  Company Number: IT-GILEAD-2022-0600954

PATIENT
  Age: 56 Year
  Sex: Female

DRUGS (1)
  1. TRODELVY [Suspect]
     Active Substance: SACITUZUMAB GOVITECAN-HZIY
     Indication: Triple negative breast cancer
     Dosage: UNK, C1 D1, D8
     Route: 065

REACTIONS (4)
  - Necrotising colitis [Fatal]
  - Diarrhoea [Unknown]
  - Pain [Unknown]
  - Stomatitis [Unknown]
